FAERS Safety Report 8543348-1 (Version None)
Quarter: 2012Q3

REPORT INFORMATION
  Report Type: 
  Country: None (occurrence: None)
  Receive Date: 20120719
  Receipt Date: 20120719
  Transmission Date: 20120928
  Serious: Yes (Other)
  Sender: FDA-Public Use
  Company Number: None

PATIENT
  Age: 65 Year
  Sex: Female
  Weight: 79.3795 kg

DRUGS (1)
  1. CIPROFLOXACIN [Suspect]
     Indication: PHARYNGITIS
     Dosage: 500 MG 2X DAY PO
     Route: 048
     Dates: start: 20120711, end: 20120718

REACTIONS (1)
  - PAIN IN EXTREMITY [None]
